FAERS Safety Report 22660466 (Version 1)
Quarter: 2023Q2

REPORT INFORMATION
  Report Type: Spontaneous
  Country: US (occurrence: US)
  Receive Date: 20230630
  Receipt Date: 20230630
  Transmission Date: 20230722
  Serious: No
  Sender: FDA-Public Use
  Company Number: US-JAZZ PHARMACEUTICALS-2022-US-023484

PATIENT
  Sex: Male

DRUGS (5)
  1. EPIDIOLEX [Suspect]
     Active Substance: CANNABIDIOL
     Indication: Epilepsy
     Dosage: GIVE 0.16 ML BY MOUTH BID WITH FOOD FOR 1 WK, THEN INCREASE TO 0.32 ML BY MOUTH BID AND CONTINUE
     Route: 048
  2. EPIDIOLEX [Suspect]
     Active Substance: CANNABIDIOL
     Dosage: 0.18 MILLILITER, BID INCREASE TO 0.36 ML BY MOUTH BID AND CONTINUE
     Route: 048
  3. PHENOBARBITAL [Concomitant]
     Active Substance: PHENOBARBITAL
     Dosage: UNK
  4. ONFI [Concomitant]
     Active Substance: CLOBAZAM
     Dosage: UNK
  5. ACARBOSE [Concomitant]
     Active Substance: ACARBOSE
     Dosage: UNK

REACTIONS (2)
  - Product dose omission issue [Unknown]
  - Off label use [Unknown]
